FAERS Safety Report 6981552-4 (Version None)
Quarter: 2010Q3

REPORT INFORMATION
  Report Type: 
  Country: None (occurrence: None)
  Receive Date: 20100909
  Receipt Date: 20100830
  Transmission Date: 20110219
  Serious: Yes (Death, Life-Threatening, Other)
  Sender: FDA-Public Use
  Company Number: A-CH2010-36613

PATIENT
  Age: 73 Year
  Sex: Male
  Weight: 52 kg

DRUGS (7)
  1. TRACLEER [Suspect]
     Indication: PULMONARY HYPERTENSION
     Dosage: 125 MG, BID, ORAL; 62.5 MG, BID, ORAL
     Route: 048
     Dates: start: 20100210, end: 20100316
  2. TRACLEER [Suspect]
     Indication: PULMONARY HYPERTENSION
     Dosage: 125 MG, BID, ORAL; 62.5 MG, BID, ORAL
     Route: 048
     Dates: start: 20100317, end: 20100421
  3. TIOTROPIUM BROMIDE (TIOTROPIUM BROMIDE) [Concomitant]
  4. ADVAIR HFA [Concomitant]
  5. ASPIRIN [Concomitant]
  6. REBAMIPIDE (REBAMIPIDE) [Concomitant]
  7. OXYGEN (OXYGEN) [Concomitant]

REACTIONS (10)
  - BRONCHIAL DISORDER [None]
  - BRONCHITIS [None]
  - CARDIO-RESPIRATORY ARREST [None]
  - CHRONIC RESPIRATORY FAILURE [None]
  - CONDITION AGGRAVATED [None]
  - HEPATITIS [None]
  - OFF LABEL USE [None]
  - PHARYNGEAL DISORDER [None]
  - PULMONARY HYPERTENSION [None]
  - RIGHT VENTRICULAR FAILURE [None]
